APPROVED DRUG PRODUCT: REZDIFFRA
Active Ingredient: RESMETIROM
Strength: 60MG
Dosage Form/Route: TABLET;ORAL
Application: N217785 | Product #001
Applicant: MADRIGAL PHARMACEUTICALS INC
Approved: Mar 14, 2024 | RLD: Yes | RS: No | Type: RX

PATENTS:
Patent 11986481 | Expires: Sep 17, 2033
Patent 11564926 | Expires: Sep 17, 2033
Patent 10376517 | Expires: Sep 17, 2033
Patent 12377104 | Expires: Feb 4, 2045
Patent 7452882 | Expires: Sep 12, 2026
Patent 9266861 | Expires: Sep 17, 2033

EXCLUSIVITY:
Code: NCE | Date: Mar 14, 2029